FAERS Safety Report 22030658 (Version 7)
Quarter: 2024Q1

REPORT INFORMATION
  Report Type: Spontaneous
  Country: IN (occurrence: IN)
  Receive Date: 20230223
  Receipt Date: 20240318
  Transmission Date: 20240410
  Serious: Yes (Hospitalization, Other)
  Sender: FDA-Public Use
  Company Number: IN-PFIZER INC-PV202300032816

PATIENT
  Age: 72 Year
  Sex: Female
  Weight: 60 kg

DRUGS (6)
  1. PALBOCICLIB [Suspect]
     Active Substance: PALBOCICLIB
     Indication: Breast cancer metastatic
     Dosage: 125 MG, 1X/DAY
     Route: 048
     Dates: start: 20230123
  2. LETROZOLE [Concomitant]
     Active Substance: LETROZOLE
     Dosage: UNK
     Dates: start: 202211
  3. LETROZOLE [Concomitant]
     Active Substance: LETROZOLE
     Dosage: UNK
     Dates: start: 202212
  4. LETROZOLE [Concomitant]
     Active Substance: LETROZOLE
     Dosage: 2.5 MG, 1X/DAY
     Route: 048
  5. ASPIRIN\ATORVASTATIN [Concomitant]
     Active Substance: ASPIRIN\ATORVASTATIN
     Dosage: TAB ECOSPRIN  AV 150/10 HS
  6. XGEVA [Concomitant]
     Active Substance: DENOSUMAB
     Dosage: UNK UNK, MONTHLY
     Dates: start: 202212

REACTIONS (20)
  - Ischaemic stroke [Recovered/Resolved with Sequelae]
  - Cerebral infarction [Unknown]
  - Abdominal pain [Unknown]
  - Diarrhoea [Unknown]
  - Cerebral atrophy [Unknown]
  - Blood cholesterol increased [Unknown]
  - White blood cell count decreased [Unknown]
  - Neutrophil count decreased [Unknown]
  - Memory impairment [Unknown]
  - Decreased appetite [Unknown]
  - Lipids increased [Unknown]
  - Dizziness [Unknown]
  - Haemoglobin decreased [Unknown]
  - Prothrombin time prolonged [Unknown]
  - Dysarthria [Unknown]
  - Asthenia [Unknown]
  - Blood glucose increased [Unknown]
  - Neoplasm progression [Unknown]
  - Platelet count decreased [Unknown]
  - Red blood cell sedimentation rate increased [Unknown]

NARRATIVE: CASE EVENT DATE: 20230901
